FAERS Safety Report 4871365-1 (Version None)
Quarter: 2006Q1

REPORT INFORMATION
  Report Type: 
  Country: None (occurrence: None)
  Receive Date: 20060103
  Receipt Date: 20051004
  Transmission Date: 20060701
  Serious: Yes (Hospitalization, Disabling)
  Sender: FDA-Public Use
  Company Number: US-MERCK-0510USA03354

PATIENT
  Age: 57 Year
  Sex: Female
  Weight: 77 kg

DRUGS (13)
  1. VIOXX [Suspect]
     Indication: ABDOMINAL PAIN
     Route: 048
     Dates: start: 19990827, end: 19991031
  2. VIOXX [Suspect]
     Route: 048
     Dates: start: 20000509, end: 20000601
  3. VIOXX [Suspect]
     Route: 048
     Dates: start: 20010117, end: 20010201
  4. ACCUPRIL [Concomitant]
     Indication: HYPERTENSION
     Route: 065
     Dates: start: 19990827
  5. CARTIA (DILTIAZEM HYDROCHLORIDE) [Concomitant]
     Route: 065
  6. GLYBURIDE [Concomitant]
     Route: 065
  7. HYDROCHLOROTHIAZIDE [Concomitant]
     Indication: HYPERTENSION
     Route: 065
     Dates: start: 19990726
  8. LIPITOR [Concomitant]
     Indication: BLOOD CHOLESTEROL INCREASED
     Route: 065
     Dates: start: 19990805
  9. PREVACID [Concomitant]
     Route: 065
  10. PRILOSEC [Concomitant]
     Route: 065
  11. ACETAMINOPHEN AND PROPOXYPHENE HYDROCHLORIDE [Concomitant]
     Route: 065
     Dates: start: 19990805, end: 19990901
  12. PROPULSID [Concomitant]
     Route: 065
  13. DURAGESIC-100 [Concomitant]
     Route: 065
     Dates: start: 19990916, end: 20041201

REACTIONS (28)
  - ABDOMINAL DISCOMFORT [None]
  - ABDOMINAL PAIN [None]
  - ANXIETY [None]
  - BACTERIAL INFECTION [None]
  - CARDIAC MURMUR [None]
  - CAROTID ARTERY STENOSIS [None]
  - CEREBROVASCULAR ACCIDENT [None]
  - CONSTIPATION [None]
  - CORONARY ARTERY STENOSIS [None]
  - DEPRESSION [None]
  - DIPLOPIA [None]
  - EYE INFECTION [None]
  - EYE IRRITATION [None]
  - FUNGAL INFECTION [None]
  - HAEMOGLOBIN DECREASED [None]
  - HYPERLIPIDAEMIA [None]
  - HYPERTENSIVE CRISIS [None]
  - HYPOKALAEMIA [None]
  - INCONTINENCE [None]
  - INFECTION [None]
  - NAIL INFECTION [None]
  - NAUSEA [None]
  - NEUROPATHY [None]
  - OEDEMA [None]
  - RASH [None]
  - SINUS CONGESTION [None]
  - VOMITING [None]
  - WHITE BLOOD CELL COUNT INCREASED [None]
